FAERS Safety Report 9517222 (Version 1)
Quarter: 2013Q1

REPORT INFORMATION
  Report Type: Spontaneous
  Country: US (occurrence: None)
  Receive Date: 20130305
  Receipt Date: 20130305
  Transmission Date: 20140127
  Serious: Yes (Other)
  Sender: FDA-Public Use
  Company Number: 163-21880-12113577

PATIENT
  Age: 65 Year
  Sex: Female
  Weight: 51.71 kg

DRUGS (10)
  1. REVLIMID [Suspect]
     Indication: PLASMA CELL MYELOMA
     Route: 048
     Dates: start: 20071129
  2. ASPIRIN BUFFERED (ACETYLSALICYLIC ACID) [Concomitant]
  3. BIOTIN (BIOTIN) [Concomitant]
  4. CALCIUM CITRATE (CALCIUIM CITRATE) [Concomitant]
  5. OCUVITE (OCUVITE) [Concomitant]
  6. OMEGA 3 FISH OIL (FISH OIL) [Concomitant]
  7. PREVACID (LANSOPRAZOLE) [Concomitant]
  8. SUPER B COMPLEX WITH C (COMBEVIT C) [Concomitant]
  9. VITAMIN D (ERGOCALCIFEROL) [Concomitant]
  10. ZOMETA (ZOLEDRONIC ACID) [Concomitant]

REACTIONS (1)
  - Blood count abnormal [None]
